FAERS Safety Report 7516670-5 (Version None)
Quarter: 2011Q2

REPORT INFORMATION
  Report Type: 
  Country: None (occurrence: None)
  Receive Date: 20110523
  Receipt Date: 20110518
  Transmission Date: 20111010
  Serious: Yes (Hospitalization, Other)
  Sender: FDA-Public Use
  Company Number: JPI-P-015099

PATIENT
  Age: 60 Year
  Sex: Male

DRUGS (4)
  1. XYREM [Suspect]
     Indication: NARCOLEPSY
     Dosage: 4.5 GM (2.25 GM, 2 IN 1 D), ORAL (5 GM FIRST/4 GM SECOND AND THIRD DOSE), ORAL
     Route: 048
     Dates: start: 20050112
  2. XYREM [Suspect]
     Indication: NARCOLEPSY
     Dosage: 4.5 GM (2.25 GM, 2 IN 1 D), ORAL (5 GM FIRST/4 GM SECOND AND THIRD DOSE), ORAL
     Route: 048
     Dates: start: 20060210, end: 20110401
  3. XYREM [Suspect]
     Indication: NARCOLEPSY
     Dosage: 4.5 GM (2.25 GM, 2 IN 1 D), ORAL (5 GM FIRST/4 GM SECOND AND THIRD DOSE), ORAL
     Route: 048
     Dates: start: 20110501
  4. MULTIPLE UNSPECIED MEDICINES [Concomitant]

REACTIONS (5)
  - UPPER LIMB FRACTURE [None]
  - LIVER DISORDER [None]
  - PNEUMONIA [None]
  - RENAL DISORDER [None]
  - FALL [None]
